FAERS Safety Report 11580126 (Version 1)
Quarter: 2015Q3

REPORT INFORMATION
  Report Type: Spontaneous
  Country: US (occurrence: US)
  Receive Date: 20150916
  Receipt Date: 20150916
  Transmission Date: 20151125
  Serious: No
  Sender: FDA-Public Use
  Company Number: US-ELI_LILLY_AND_COMPANY-US200804007166

PATIENT
  Age: 63 Year
  Sex: Female

DRUGS (5)
  1. DYNA-CIRC [Concomitant]
     Indication: BLOOD PRESSURE MEASUREMENT
     Dosage: 5 MG, DAILY (1/D)
  2. OSCAL [Concomitant]
     Active Substance: CALCIUM CARBONATE
     Dosage: 3 UNK, DAILY (1/D)
  3. FORTEO [Suspect]
     Active Substance: TERIPARATIDE
     Indication: OSTEOPOROSIS
     Dates: start: 20080402
  4. VITAMIN D [Concomitant]
     Active Substance: CHOLECALCIFEROL
     Dosage: 50000 U, WEEKLY (1/W)
  5. MAXZIDE [Concomitant]
     Active Substance: HYDROCHLOROTHIAZIDE\TRIAMTERENE
     Dosage: 25 MG, DAILY (1/D)

REACTIONS (8)
  - Rhinorrhoea [Not Recovered/Not Resolved]
  - Feeling abnormal [Unknown]
  - Spinal pain [Not Recovered/Not Resolved]
  - Dizziness [Not Recovered/Not Resolved]
  - Abdominal discomfort [Not Recovered/Not Resolved]
  - Musculoskeletal pain [Not Recovered/Not Resolved]
  - Sneezing [Not Recovered/Not Resolved]
  - Neck pain [Not Recovered/Not Resolved]

NARRATIVE: CASE EVENT DATE: 200804
